FAERS Safety Report 7547994-3 (Version None)
Quarter: 2011Q2

REPORT INFORMATION
  Report Type: 
  Country: None (occurrence: None)
  Receive Date: 20110608
  Receipt Date: 20110523
  Transmission Date: 20111010
  Serious: Yes (Other)
  Sender: FDA-Public Use
  Company Number: FK201101058

PATIENT
  Age: 42 Year
  Sex: Female

DRUGS (7)
  1. ALFENTANIL [Concomitant]
  2. MORPHINE [Concomitant]
  3. ONDANSETRON [Suspect]
     Indication: ANTIEMETIC SUPPORTIVE CARE
     Dosage: 4 MG, 2 DOSES TOTAL, INTRAVENOUS
     Route: 042
     Dates: start: 20110504, end: 20110504
  4. NEOSTIGMINE (NEOSTIGMINE) [Concomitant]
  5. PROPOFOL [Concomitant]
  6. AGTRACURIUM (ATRACURIUM) [Concomitant]
  7. GLUCOPROLATE (GLUCOPRONIUM) [Concomitant]

REACTIONS (5)
  - TREMOR [None]
  - NAUSEA [None]
  - OXYGEN SATURATION DECREASED [None]
  - UNRESPONSIVE TO STIMULI [None]
  - SOMNOLENCE [None]
